FAERS Safety Report 4964949-3 (Version None)
Quarter: 2006Q1

REPORT INFORMATION
  Report Type: 
  Country: None (occurrence: None)
  Receive Date: 20060201
  Receipt Date: 20051101
  Transmission Date: 20060701
  Serious: No
  Sender: FDA-Public Use
  Company Number: FACT0500572

PATIENT
  Age: 49 Year
  Sex: Male
  Weight: 95.2 kg

DRUGS (4)
  1. FACTIVE [Suspect]
     Indication: RESPIRATORY TRACT INFECTION BACTERIAL
     Dosage: 640 MG, QD, ORAL
     Route: 048
     Dates: start: 20050906, end: 20050912
  2. LISINOPRIL [Concomitant]
  3. LIPITOR [Concomitant]
  4. ALLEGRA [Concomitant]

REACTIONS (2)
  - RASH GENERALISED [None]
  - URTICARIA [None]
